FAERS Safety Report 5645090-3 (Version None)
Quarter: 2008Q1

REPORT INFORMATION
  Report Type: 
  Country: None (occurrence: None)
  Receive Date: 20080131
  Receipt Date: 20071104
  Transmission Date: 20080703
  Serious: No
  Sender: FDA-Public Use
  Company Number: PHEH2007US14428

PATIENT
  Age: 50 Year
  Sex: Male
  Weight: 81.6 kg

DRUGS (4)
  1. TEKTURNA [Suspect]
     Dosage: 150 MG, QD, ORAL
     Route: 048
     Dates: start: 20070801, end: 20070820
  2. ASPIRIN [Concomitant]
  3. CHOLESTEROL- AND TRIGLYCERIDES REDUCERS (NO INGREDIENTS/SUBSTANCES) [Concomitant]
  4. HYDROCHLOROTHIAZIDE [Concomitant]

REACTIONS (1)
  - COUGH [None]
